FAERS Safety Report 15547389 (Version 2)
Quarter: 2020Q3

REPORT INFORMATION
  Report Type: Report from Study
  Country: DE (occurrence: DE)
  Receive Date: 20181024
  Receipt Date: 20181119
  Transmission Date: 20201105
  Serious: Yes (Hospitalization)
  Sender: FDA-Public Use
  Company Number: DE-JNJFOC-20180909404

PATIENT
  Sex: Female
  Weight: 57 kg

DRUGS (6)
  1. MORPHINE [Concomitant]
     Active Substance: MORPHINE
     Indication: ILL-DEFINED DISORDER
     Route: 065
     Dates: start: 2017
  2. TRABECTEDIN [Suspect]
     Active Substance: TRABECTEDIN
     Indication: SPINDLE CELL SARCOMA
     Dosage: CYCLE 1, DAY 1
     Route: 042
     Dates: start: 20180820
  3. TRABECTEDIN [Suspect]
     Active Substance: TRABECTEDIN
     Route: 042
  4. TRABECTEDIN [Suspect]
     Active Substance: TRABECTEDIN
     Route: 042
  5. MOVICOL [Concomitant]
     Active Substance: POLYETHYLENE GLYCOL 3350\POTASSIUM CHLORIDE\SODIUM BICARBONATE\SODIUM CHLORIDE
     Indication: ILL-DEFINED DISORDER
     Route: 065
     Dates: start: 2017
  6. NOVAMINSULFON [Concomitant]
     Active Substance: METAMIZOLE
     Indication: ILL-DEFINED DISORDER
     Route: 065
     Dates: start: 201807

REACTIONS (1)
  - Pneumonia [Recovered/Resolved]

NARRATIVE: CASE EVENT DATE: 20180903
